FAERS Safety Report 20956877 (Version 1)
Quarter: 2022Q2

REPORT INFORMATION
  Report Type: Spontaneous
  Country: JP (occurrence: JP)
  Receive Date: 20220614
  Receipt Date: 20220614
  Transmission Date: 20220721
  Serious: Yes (Other)
  Sender: FDA-Public Use
  Company Number: JP-SAMOHPHARM-2022002578

PATIENT

DRUGS (2)
  1. CARGLUMIC ACID [Suspect]
     Active Substance: CARGLUMIC ACID
     Indication: Methylmalonic aciduria
  2. ARGININE [Suspect]
     Active Substance: ARGININE
     Indication: Amino acid level increased

REACTIONS (2)
  - Altered state of consciousness [Unknown]
  - Eye movement disorder [Unknown]
